FAERS Safety Report 16933395 (Version 1)
Quarter: 2019Q4

REPORT INFORMATION
  Report Type: Spontaneous
  Country: US (occurrence: US)
  Receive Date: 20191018
  Receipt Date: 20191018
  Transmission Date: 20200122
  Serious: No
  Sender: FDA-Public Use
  Company Number: US-LUPIN PHARMACEUTICALS INC.-2019-01235

PATIENT
  Age: 60 Year
  Sex: Female
  Weight: 76.66 kg

DRUGS (5)
  1. LYRICA [Suspect]
     Active Substance: PREGABALIN
     Dosage: 225 MILLIGRAM, BID
     Route: 048
     Dates: start: 201801
  2. DULOXETINE DELAYED-RELEASE CAPSULES [Suspect]
     Active Substance: DULOXETINE
     Indication: ANTACID THERAPY
     Dosage: 60 MILLIGRAM, QD
     Route: 048
  3. LYRICA [Suspect]
     Active Substance: PREGABALIN
     Indication: NEURALGIA
     Dosage: 75 MILLIGRAM, BID
     Route: 048
     Dates: start: 201801
  4. TIZANIDINE. [Concomitant]
     Active Substance: TIZANIDINE
     Indication: PAIN
     Dosage: 4 MILLIGRAM, TID
     Route: 048
  5. OMEPRAZOLE DELAYED-RELEASE CAPSULES [Suspect]
     Active Substance: OMEPRAZOLE
     Indication: ANXIETY
     Dosage: 20 MILLIGRAM, QD
     Route: 048

REACTIONS (2)
  - Weight increased [Not Recovered/Not Resolved]
  - Product use in unapproved indication [Unknown]

NARRATIVE: CASE EVENT DATE: 201801
